FAERS Safety Report 4891107-3 (Version None)
Quarter: 2006Q1

REPORT INFORMATION
  Report Type: 
  Country: None (occurrence: None)
  Receive Date: 20060125
  Receipt Date: 20060105
  Transmission Date: 20060701
  Serious: Yes (Other)
  Sender: FDA-Public Use
  Company Number: US-MERCK-0601USA00679

PATIENT
  Sex: Male

DRUGS (2)
  1. COZAAR [Suspect]
     Route: 048
     Dates: start: 20051122
  2. [THERAPY UNSPECIFIED] [Concomitant]
     Route: 065

REACTIONS (1)
  - BLINDNESS [None]
